FAERS Safety Report 18469597 (Version 4)
Quarter: 2021Q1

REPORT INFORMATION
  Report Type: Spontaneous
  Country: JP (occurrence: JP)
  Receive Date: 20201105
  Receipt Date: 20210319
  Transmission Date: 20210419
  Serious: Yes (Hospitalization)
  Sender: FDA-Public Use
  Company Number: JP-ELI_LILLY_AND_COMPANY-JP202010010974

PATIENT
  Age: 77 Year
  Sex: Female
  Weight: 87 kg

DRUGS (5)
  1. CYRAMZA [Suspect]
     Active Substance: RAMUCIRUMAB
     Indication: GASTRIC CANCER
     Dosage: UNK
     Route: 042
     Dates: start: 20200528
  2. CYRAMZA [Suspect]
     Active Substance: RAMUCIRUMAB
     Dosage: 275 MG
     Route: 042
     Dates: start: 20200604
  3. PACLITAXEL. [Suspect]
     Active Substance: PACLITAXEL
     Indication: GASTRIC CANCER
     Dosage: UNK
     Route: 042
     Dates: start: 20200526
  4. PACLITAXEL. [Suspect]
     Active Substance: PACLITAXEL
     Dosage: 70 MG
     Route: 042
     Dates: start: 20200604
  5. PACLITAXEL. [Suspect]
     Active Substance: PACLITAXEL
     Dosage: UNK
     Route: 042

REACTIONS (2)
  - Cutaneous symptom [Unknown]
  - Cardiac failure [Recovered/Resolved]

NARRATIVE: CASE EVENT DATE: 20200924
